FAERS Safety Report 21493633 (Version 1)
Quarter: 2022Q4

REPORT INFORMATION
  Report Type: Spontaneous
  Country: US (occurrence: None)
  Receive Date: 20221021
  Receipt Date: 20221021
  Transmission Date: 20230112
  Serious: Yes (Other)
  Sender: FDA-Public Use
  Company Number: None

PATIENT
  Age: 38 Year
  Sex: Female
  Weight: 58.95 kg

DRUGS (1)
  1. VIVITROL [Suspect]
     Active Substance: NALTREXONE
     Indication: Alcohol use disorder
     Dosage: OTHER FREQUENCY : MONTHLY INJECTION;?
     Route: 030
     Dates: start: 20221014

REACTIONS (4)
  - Injection site pain [None]
  - Injection site swelling [None]
  - Injection site pain [None]
  - Injection site warmth [None]

NARRATIVE: CASE EVENT DATE: 20221021
